FAERS Safety Report 11623333 (Version 1)
Quarter: 2015Q4

REPORT INFORMATION
  Report Type: Spontaneous
  Country: US (occurrence: US)
  Receive Date: 20151013
  Receipt Date: 20151013
  Transmission Date: 20160304
  Serious: No
  Sender: FDA-Public Use
  Company Number: US-JNJFOC-20141106148

PATIENT
  Age: 84 Year
  Sex: Male
  Weight: 120.2 kg

DRUGS (1)
  1. TYLENOL REGULAR STRENGTH [Suspect]
     Active Substance: ACETAMINOPHEN
     Indication: NASOPHARYNGITIS
     Dosage: DOSAGE - 2 TABLETS????INTERVAL - 1 TIME
     Route: 048
     Dates: start: 20141105

REACTIONS (2)
  - Product packaging issue [Unknown]
  - Drug administration error [Unknown]
